FAERS Safety Report 5341458-3 (Version None)
Quarter: 2007Q2

REPORT INFORMATION
  Report Type: 
  Country: None (occurrence: None)
  Receive Date: 20070601
  Receipt Date: 20070522
  Transmission Date: 20071010
  Serious: Yes (Other)
  Sender: FDA-Public Use
  Company Number: PHBS2007IT08693

PATIENT
  Age: 19 Year
  Sex: Male

DRUGS (3)
  1. OXCARBAZEPINE [Suspect]
     Indication: PARTIAL SEIZURES
  2. ACTH [Suspect]
  3. PRIMIDONE [Suspect]

REACTIONS (2)
  - DRUG INTERACTION [None]
  - DRUG LEVEL DECREASED [None]
